FAERS Safety Report 15631630 (Version 5)
Quarter: 2019Q1

REPORT INFORMATION
  Report Type: Spontaneous
  Country: AT (occurrence: AT)
  Receive Date: 20181119
  Receipt Date: 20190328
  Transmission Date: 20190417
  Serious: Yes (Death, Life-Threatening, Hospitalization, Other)
  Sender: FDA-Public Use
  Company Number: AT-CELGENEUS-AUT-20181010931

PATIENT
  Age: 91 Year
  Sex: Female

DRUGS (22)
  1. PANTOPRAZOL [Concomitant]
     Active Substance: PANTOPRAZOLE SODIUM
     Indication: GASTROINTESTINAL HAEMORRHAGE
     Dosage: 40 MILLIGRAM
     Route: 048
     Dates: start: 20180124
  2. SERACTIL [Concomitant]
     Active Substance: DEXIBUPROFEN
     Indication: HIP FRACTURE
     Route: 048
     Dates: start: 20180903, end: 20181023
  3. SIRDALUD [Concomitant]
     Active Substance: TIZANIDINE
     Indication: NECK PAIN
     Dosage: 4 MILLIGRAM
     Route: 048
     Dates: start: 20180610, end: 20181111
  4. LEVOLAC [Concomitant]
     Active Substance: LACTULOSE
     Indication: CONSTIPATION
     Route: 048
     Dates: start: 20180509, end: 20181111
  5. HYDAL RETARD [Concomitant]
     Active Substance: HYDROMORPHONE HYDROCHLORIDE
     Route: 048
     Dates: start: 20180612, end: 20181108
  6. IBUPROFEN. [Concomitant]
     Active Substance: IBUPROFEN
     Indication: HEADACHE
  7. AMPHOTERICIN B. [Concomitant]
     Active Substance: AMPHOTERICIN B
     Indication: INFECTION PROPHYLAXIS
     Dosage: 6 DOSAGE FORMS
     Route: 048
     Dates: start: 20171103, end: 20181031
  8. NEUROBION FORTE [Concomitant]
     Active Substance: CYANOCOBALAMIN\PYRIDOXINE HYDROCHLORIDE\THIAMINE DISULFIDE
     Indication: NUTRITIONAL SUPPLEMENTATION
     Dosage: 1 TABLET
     Route: 048
     Dates: start: 20180208, end: 20181027
  9. LASIX [Concomitant]
     Active Substance: FUROSEMIDE
     Dosage: 20 MILLIGRAM
     Route: 048
     Dates: start: 20181031, end: 20181104
  10. TRITTICO [Concomitant]
     Active Substance: TRAZODONE HYDROCHLORIDE
     Indication: INSOMNIA
     Dosage: 150 MILLIGRAM
     Route: 048
     Dates: start: 2012, end: 20181112
  11. SIMVASTATIN. [Concomitant]
     Active Substance: SIMVASTATIN
     Indication: HYPERLIPIDAEMIA
     Dosage: 40 MILLIGRAM
     Route: 048
     Dates: start: 2012
  12. DESLORATADIN [Concomitant]
     Active Substance: DESLORATADINE
     Indication: PRURITUS
     Route: 048
     Dates: start: 20171101, end: 20181108
  13. AZACITIDINE. [Suspect]
     Active Substance: AZACITIDINE
     Indication: ACUTE MYELOID LEUKAEMIA
     Dosage: 75 MILLIGRAM/SQ. METER
     Route: 058
     Dates: start: 20171027
  14. VENETOCLAX. [Concomitant]
     Active Substance: VENETOCLAX
     Indication: ACUTE MYELOID LEUKAEMIA
     Route: 065
  15. SICCAPROTECT [Concomitant]
     Indication: PROPHYLAXIS
     Route: 061
     Dates: start: 20171026, end: 20181108
  16. DEXPANTHENOL. [Concomitant]
     Active Substance: DEXPANTHENOL
     Indication: INFECTION PROPHYLAXIS
     Dosage: 3 DOSAGE FORMS
     Route: 002
     Dates: start: 20171103, end: 20181031
  17. HYDAL RETARD [Concomitant]
     Active Substance: HYDROMORPHONE HYDROCHLORIDE
     Indication: NECK PAIN
     Dosage: 4 MILLIGRAM
     Route: 048
     Dates: start: 20180611, end: 20181102
  18. DRONABINOL. [Concomitant]
     Active Substance: DRONABINOL
     Indication: DECREASED APPETITE
     Dosage: 6 DROPS
     Route: 048
     Dates: start: 20180123, end: 20181108
  19. NOVALGIN [Concomitant]
     Indication: NECK PAIN
     Route: 048
     Dates: start: 20180613
  20. IBUPROFEN. [Concomitant]
     Active Substance: IBUPROFEN
     Indication: NECK PAIN
     Route: 048
     Dates: start: 20171025, end: 201810
  21. LASIX [Concomitant]
     Active Substance: FUROSEMIDE
     Indication: PROPHYLAXIS
     Dosage: 20 MILLIGRAM
     Route: 048
     Dates: start: 20180125, end: 20181027
  22. ZOFRAN [Concomitant]
     Active Substance: ONDANSETRON HYDROCHLORIDE
     Indication: NAUSEA
     Route: 048
     Dates: start: 20171126, end: 20181108

REACTIONS (2)
  - Subdural haematoma [Fatal]
  - Thrombocytopenia [Unknown]

NARRATIVE: CASE EVENT DATE: 20181022
